FAERS Safety Report 9514861 (Version 1)
Quarter: 2013Q3

REPORT INFORMATION
  Report Type: Spontaneous
  Country: US (occurrence: None)
  Receive Date: 20130909
  Receipt Date: 20130909
  Transmission Date: 20140515
  Serious: Yes (Death)
  Sender: FDA-Public Use
  Company Number: 1885564

PATIENT
  Age: 56 Year
  Sex: Male

DRUGS (15)
  1. DOCETAXEL [Suspect]
     Indication: SQUAMOUS CELL CARCINOMA OF HEAD AND NECK
     Dosage: NOT REPORTED , UNKNOWN, UNKNOWN
  2. CISPLATIN [Suspect]
     Indication: SQUAMOUS CELL CARCINOMA OF HEAD AND NECK
     Dosage: NOT REPORTED , UNKNOWN , UNKNOWN
  3. FLUOROURACIL [Suspect]
     Indication: SQUAMOUS CELL CARCINOMA OF HEAD AND NECK
     Dosage: NOT REPORTED, UNKNOWN, UNKNOWN
  4. (THERAPEUTIC RADIOPHARMACEUTICALS) [Concomitant]
  5. CISPLATIN [Concomitant]
  6. FLUOROURACIL [Concomitant]
  7. [THERAPEUTIC RADIOPHARMACEUTICALS] [Concomitant]
  8. [HYDRALAZINE] [Concomitant]
  9. [LISINOPRIL] [Concomitant]
  10. [HYDROCHLOROTHIAZIDE] [Concomitant]
  11. [METOPROLOL] [Concomitant]
  12. [LEVOTHYROXINE] [Concomitant]
  13. [ATORVASTATIN] [Concomitant]
  14. [AMIODARONE] [Concomitant]
  15. [FUROSEMIDE] [Concomitant]

REACTIONS (9)
  - Histiocytosis haematophagic [None]
  - Shock [None]
  - Pancytopenia [None]
  - Lactic acidosis [None]
  - Acute respiratory distress syndrome [None]
  - Multi-organ failure [None]
  - Serum ferritin increased [None]
  - Blood triglycerides increased [None]
  - Blood fibrinogen decreased [None]
